FAERS Safety Report 15608129 (Version 3)
Quarter: 2019Q1

REPORT INFORMATION
  Report Type: Spontaneous
  Country: US (occurrence: US)
  Receive Date: 20181112
  Receipt Date: 20190305
  Transmission Date: 20190417
  Serious: No
  Sender: FDA-Public Use
  Company Number: US-PFIZER INC-2018456733

PATIENT
  Age: 62 Year
  Sex: Female
  Weight: 83.91 kg

DRUGS (1)
  1. IBRANCE [Suspect]
     Active Substance: PALBOCICLIB
     Indication: BREAST CANCER
     Dosage: 125 MG, CYCLIC [21 DAYS ON AND 7 DAYS OFF]
     Route: 048
     Dates: start: 201902

REACTIONS (1)
  - Neoplasm progression [Unknown]
